FAERS Safety Report 21087593 (Version 1)
Quarter: 2022Q3

REPORT INFORMATION
  Report Type: Spontaneous
  Country: IT (occurrence: IT)
  Receive Date: 20220715
  Receipt Date: 20220715
  Transmission Date: 20221027
  Serious: Yes (Other)
  Sender: FDA-Public Use
  Company Number: IT-ROCHE-3126171

PATIENT
  Age: 63 Year
  Sex: Male

DRUGS (7)
  1. BENDAMUSTINE HYDROCHLORIDE [Suspect]
     Active Substance: BENDAMUSTINE HYDROCHLORIDE
     Indication: Chronic lymphocytic leukaemia
     Dosage: UNK (SECOND LINE TREATMENT WITH BENDAMUSTINE-RITUXIMAB FOR 6 COURSES)
     Route: 065
     Dates: start: 201709, end: 201803
  2. FLUDARABINE [Suspect]
     Active Substance: FLUDARABINE PHOSPHATE
     Indication: Chronic lymphocytic leukaemia
     Dosage: UNK (FLUDARABINE-CYCLOPHOSPHAMIDE-RITUXIMAB WAS ADMINISTERED FOR 6 COURSES)
     Route: 065
     Dates: start: 201410, end: 201502
  3. VENETOCLAX [Suspect]
     Active Substance: VENETOCLAX
     Indication: Chronic lymphocytic leukaemia
     Dosage: UNK
     Route: 065
  4. RITUXIMAB [Suspect]
     Active Substance: RITUXIMAB
     Indication: Chronic lymphocytic leukaemia
     Dosage: UNK (FLUDARABINE-CYCLOPHOSPHAMIDE-RITUXIMAB WAS ADMINISTERED FOR 6 COURSES)
     Route: 065
     Dates: start: 201410, end: 201502
  5. RITUXIMAB [Suspect]
     Active Substance: RITUXIMAB
     Dosage: UNK (SECOND LINE TREATMENT WITH BENDAMUSTINE-RITUXIMAB FOR 6 COURSES)
     Route: 065
     Dates: start: 201709, end: 201803
  6. PEMBROLIZUMAB [Suspect]
     Active Substance: PEMBROLIZUMAB
     Indication: Chronic lymphocytic leukaemia
     Dosage: 2 MILLIGRAM/KILOGRAM, MONTHLY
     Route: 065
  7. MIRTAZAPINE [Concomitant]
     Active Substance: MIRTAZAPINE
     Indication: Hypogammaglobulinaemia
     Dosage: UNK
     Route: 065

REACTIONS (3)
  - Progressive multifocal leukoencephalopathy [Unknown]
  - Disease progression [Unknown]
  - Drug ineffective [Unknown]
